FAERS Safety Report 22350849 (Version 2)
Quarter: 2023Q2

REPORT INFORMATION
  Report Type: Other
  Country: US (occurrence: None)
  Receive Date: 20230522
  Receipt Date: 20230628
  Transmission Date: 20230722
  Serious: Yes (Other)
  Sender: FDA-Public Use
  Company Number: US-ROCHE-2531920

PATIENT

DRUGS (3)
  1. TRASTUZUMAB [Suspect]
     Active Substance: TRASTUZUMAB
     Indication: Colorectal cancer metastatic
     Dosage: INITIAL LOADING DOSE
     Route: 042
  2. TRASTUZUMAB [Suspect]
     Active Substance: TRASTUZUMAB
     Route: 042
  3. TUCATINIB [Suspect]
     Active Substance: TUCATINIB
     Indication: Colorectal cancer metastatic
     Route: 048

REACTIONS (49)
  - Diarrhoea [Unknown]
  - Fatigue [Unknown]
  - Chills [Unknown]
  - Back pain [Unknown]
  - Arthralgia [Unknown]
  - Abdominal pain [Unknown]
  - Constipation [Unknown]
  - Pain in extremity [Unknown]
  - Nephrolithiasis [Unknown]
  - Flank pain [Unknown]
  - Aspartate aminotransferase increased [Unknown]
  - Alanine aminotransferase increased [Unknown]
  - Urinary tract infection [Unknown]
  - Hyponatraemia [Unknown]
  - Small intestinal obstruction [Unknown]
  - Pulmonary embolism [Unknown]
  - Rectal perforation [Unknown]
  - Weight increased [Unknown]
  - Large intestinal obstruction [Unknown]
  - Hypotension [Unknown]
  - Acute kidney injury [Unknown]
  - Angina unstable [Unknown]
  - Bile duct stone [Unknown]
  - Blood bilirubin increased [Unknown]
  - Cancer pain [Unknown]
  - Colitis [Unknown]
  - Gastrointestinal obstruction [Unknown]
  - Hypertransaminasaemia [Unknown]
  - Hypoxia [Unknown]
  - Kidney infection [Unknown]
  - Lymphocyte count decreased [Unknown]
  - Renal colic [Unknown]
  - Sepsis [Unknown]
  - COVID-19 pneumonia [Unknown]
  - Acute respiratory failure [Unknown]
  - Cholangitis [Unknown]
  - Hypertension [Unknown]
  - Nausea [Unknown]
  - Infusion related reaction [Unknown]
  - Pyrexia [Unknown]
  - Decreased appetite [Unknown]
  - Dermatitis acneiform [Unknown]
  - Cough [Unknown]
  - Vomiting [Unknown]
  - Dyspnoea [Unknown]
  - Myalgia [Unknown]
  - Anaemia [Unknown]
  - Anxiety [Unknown]
  - Rash [Unknown]
